FAERS Safety Report 4290880-5 (Version None)
Quarter: 2004Q1

REPORT INFORMATION
  Report Type: 
  Country: None (occurrence: None)
  Receive Date: 20040209
  Receipt Date: 20040127
  Transmission Date: 20041129
  Serious: Yes (Death)
  Sender: FDA-Public Use
  Company Number: FR-JNJFOC-20040201029

PATIENT
  Age: 68 Year
  Sex: Male
  Weight: 73 kg

DRUGS (9)
  1. REMICADE [Suspect]
     Indication: RHEUMATOID ARTHRITIS
     Dosage: 109 MG, INTRAVENOUS
     Route: 042
     Dates: start: 20020329, end: 20030811
  2. METHOTREXATE [Suspect]
     Indication: RHEUMATOID ARTHRITIS
     Dosage: 10 MG, 1 IN 1 WEEK, ORAL
     Route: 048
     Dates: start: 20020201, end: 20031124
  3. CELECTOL [Concomitant]
  4. FOLIC ACID [Concomitant]
  5. HYDROCORTISONE [Concomitant]
  6. CACIT D3 (LEVOKIT CA) [Concomitant]
  7. ISOBAR (ISOBAR) [Concomitant]
  8. OMEPRAZOLE [Concomitant]
  9. KARDEGIC (ACETYLSALICYLATE LYSINE) [Concomitant]

REACTIONS (6)
  - DEVICE FAILURE [None]
  - LUNG DISORDER [None]
  - MEDICAL DEVICE COMPLICATION [None]
  - SALMONELLOSIS [None]
  - SEPTIC SHOCK [None]
  - SHOCK HAEMORRHAGIC [None]
